FAERS Safety Report 17631810 (Version 14)
Quarter: 2025Q3

REPORT INFORMATION
  Report Type: Report from Study
  Country: US (occurrence: US)
  Receive Date: 20200406
  Receipt Date: 20250709
  Transmission Date: 20251020
  Serious: Yes (Other)
  Sender: TAKEDA
  Company Number: US-SHIRE-US202012476

PATIENT
  Age: 75 Year
  Sex: Female
  Weight: 78 kg

DRUGS (37)
  1. HUMAN IMMUNOGLOBULIN G [Suspect]
     Active Substance: HUMAN IMMUNOGLOBULIN G
     Indication: Immunodeficiency common variable
     Dosage: 25 GRAM, Q2WEEKS
     Dates: start: 20191118
  2. MYRBETRIQ [Suspect]
     Active Substance: MIRABEGRON
     Indication: Product used for unknown indication
  3. ACETAMINOPHEN [Concomitant]
     Active Substance: ACETAMINOPHEN
  4. DICLOFENAC SODIUM [Concomitant]
     Active Substance: DICLOFENAC SODIUM
  5. FLONASE [Concomitant]
     Active Substance: FLUTICASONE PROPIONATE
  6. CLONIDINE HYDROCHLORIDE [Concomitant]
     Active Substance: CLONIDINE HYDROCHLORIDE
  7. OXYBUTYNIN CHLORIDE [Concomitant]
     Active Substance: OXYBUTYNIN CHLORIDE
  8. RITUXAN [Concomitant]
     Active Substance: RITUXIMAB
  9. TYLENOL [Concomitant]
     Active Substance: ACETAMINOPHEN
  10. PANTOPRAZOLE [Concomitant]
     Active Substance: PANTOPRAZOLE
  11. CALCIUM\CHOLECALCIFEROL [Concomitant]
     Active Substance: CALCIUM\CHOLECALCIFEROL
  12. DIPHENHYDRAMINE HYDROCHLORIDE [Concomitant]
     Active Substance: DIPHENHYDRAMINE HYDROCHLORIDE
  13. OCUVITE [Concomitant]
     Active Substance: VITAMINS
  14. HYZAAR [Concomitant]
     Active Substance: HYDROCHLOROTHIAZIDE\LOSARTAN POTASSIUM
  15. LIDOCAINE [Concomitant]
     Active Substance: LIDOCAINE
  16. MUCINEX [Concomitant]
     Active Substance: GUAIFENESIN
  17. TRAMADOL HCL [Concomitant]
     Active Substance: TRAMADOL HYDROCHLORIDE
  18. LAMICTAL [Concomitant]
     Active Substance: LAMOTRIGINE
  19. PROVENTIL [Concomitant]
     Active Substance: ALBUTEROL
  20. CLARITIN [Concomitant]
     Active Substance: LORATADINE
  21. TESSALON [Concomitant]
     Active Substance: BENZONATATE
  22. ATORVASTATIN CALCIUM [Concomitant]
     Active Substance: ATORVASTATIN CALCIUM
  23. SOLU-MEDROL [Concomitant]
     Active Substance: METHYLPREDNISOLONE SODIUM SUCCINATE
  24. REMERON [Concomitant]
     Active Substance: MIRTAZAPINE
  25. VITAMIN B COMPLEX [Concomitant]
     Active Substance: CYANOCOBALAMIN\DEXPANTHENOL\NIACINAMIDE\PYRIDOXINE HYDROCHLORIDE\RIBOFLAVIN 5^-PHOSPHATE SODIUM\THIA
  26. ARAVA [Concomitant]
     Active Substance: LEFLUNOMIDE
  27. IPRATROPIUM BROMIDE [Concomitant]
     Active Substance: IPRATROPIUM BROMIDE
  28. ATORVASTATIN [Concomitant]
     Active Substance: ATORVASTATIN
  29. DIPHENHYDRAMINE [Concomitant]
     Active Substance: DIPHENHYDRAMINE
  30. TUSSIN [Concomitant]
     Active Substance: GUAIFENESIN
     Indication: Product used for unknown indication
  31. CLONIDINE [Concomitant]
     Active Substance: CLONIDINE
  32. VITAMIN C [Concomitant]
     Active Substance: ASCORBIC ACID
  33. EPINEPHRINE [Concomitant]
     Active Substance: EPINEPHRINE
  34. PROLIA [Concomitant]
     Active Substance: DENOSUMAB
  35. PANTOPRAZOLE SODIUM [Concomitant]
     Active Substance: PANTOPRAZOLE SODIUM
  36. FLUTICASONE PROPIONATE [Concomitant]
     Active Substance: FLUTICASONE PROPIONATE
  37. PROVENTIL HFA [Concomitant]
     Active Substance: ALBUTEROL SULFATE

REACTIONS (16)
  - B-cell lymphoma [Unknown]
  - Osteoarthritis [Unknown]
  - Infusion site discharge [Unknown]
  - Platelet count decreased [Unknown]
  - Arthropod bite [Unknown]
  - Respiratory tract congestion [Unknown]
  - Drug hypersensitivity [Unknown]
  - Respiratory tract infection [Recovered/Resolved]
  - Product dose omission issue [Unknown]
  - COVID-19 [Recovered/Resolved]
  - Device connection issue [Unknown]
  - Infusion site haemorrhage [Unknown]
  - Sinusitis [Unknown]
  - Malaise [Unknown]
  - Hypersensitivity [Unknown]
  - Urticaria [Unknown]

NARRATIVE: CASE EVENT DATE: 20231218
